FAERS Safety Report 4483847-5 (Version None)
Quarter: 2004Q4

REPORT INFORMATION
  Report Type: 
  Country: None (occurrence: None)
  Receive Date: 20041022
  Receipt Date: 20041022
  Transmission Date: 20050328
  Serious: Yes (Hospitalization)
  Sender: FDA-Public Use
  Company Number: None

PATIENT
  Age: 46 Year
  Sex: Female

DRUGS (1)
  1. TUBERSOL [Suspect]
     Indication: TUBERCULOSIS

REACTIONS (9)
  - COUGH [None]
  - FLUSHING [None]
  - HYPOAESTHESIA [None]
  - NAUSEA [None]
  - OEDEMA [None]
  - PAIN [None]
  - PRURITUS [None]
  - PYREXIA [None]
  - URTICARIA [None]
